FAERS Safety Report 12289818 (Version 1)
Quarter: 2016Q2

REPORT INFORMATION
  Report Type: Spontaneous
  Country: US (occurrence: US)
  Receive Date: 20160421
  Receipt Date: 20160421
  Transmission Date: 20160815
  Serious: Yes (Other)
  Sender: FDA-Public Use
  Company Number: US-TEVA-616737USA

PATIENT
  Sex: Female

DRUGS (1)
  1. ANAGRELIDE [Suspect]
     Active Substance: ANAGRELIDE
     Route: 065

REACTIONS (1)
  - Platelet count increased [Unknown]
